FAERS Safety Report 16425873 (Version 1)
Quarter: 2019Q2

REPORT INFORMATION
  Report Type: Report from Study
  Country: DE (occurrence: US)
  Receive Date: 20190613
  Receipt Date: 20190613
  Transmission Date: 20190711
  Serious: Yes (Hospitalization, Other)
  Sender: FDA-Public Use
  Company Number: DE-TAKEDA-2014TUS007106

PATIENT
  Age: 43 Year
  Sex: Male

DRUGS (6)
  1. LESINURAD [Suspect]
     Active Substance: LESINURAD
     Indication: GOUT
     Dosage: UNK
     Dates: end: 20140515
  2. METHYLPREDNISOLONE. [Concomitant]
     Active Substance: METHYLPREDNISOLONE
     Dosage: UNK
     Dates: end: 20140515
  3. FEBUXOSTAT. [Suspect]
     Active Substance: FEBUXOSTAT
     Indication: GOUT
     Dosage: 80 MG, QD
     Route: 048
     Dates: start: 20130416, end: 20140515
  4. COLCHICINE. [Suspect]
     Active Substance: COLCHICINE
     Indication: PROPHYLAXIS
     Dosage: 0.6 MG, QD
     Route: 048
     Dates: start: 201103, end: 20130919
  5. COLCHICINE. [Suspect]
     Active Substance: COLCHICINE
     Dosage: UNK
     Dates: start: 20140410, end: 20140515
  6. LISINOPRIL. [Concomitant]
     Active Substance: LISINOPRIL
     Dosage: UNK
     Dates: end: 20140515

REACTIONS (1)
  - Acute kidney injury [Recovered/Resolved]
